FAERS Safety Report 4514290-8 (Version None)
Quarter: 2004Q4

REPORT INFORMATION
  Report Type: 
  Country: None (occurrence: None)
  Receive Date: 20041124
  Receipt Date: 20041108
  Transmission Date: 20050328
  Serious: Yes (Other)
  Sender: FDA-Public Use
  Company Number: GBS041015788

PATIENT
  Age: 75 Year
  Sex: Male
  Weight: 70 kg

DRUGS (9)
  1. HUMALOG [Suspect]
     Indication: DIABETES MELLITUS INSULIN-DEPENDENT
     Dosage: 30 U DAY
  2. HUMALOG [Suspect]
     Indication: DIABETES MELLITUS INSULIN-DEPENDENT
     Dosage: 30 U DAY
  3. ASPIRIN [Concomitant]
  4. DOXAZOSIN [Concomitant]
  5. COAPROVEL [Concomitant]
  6. CASODEX [Concomitant]
  7. PROSTAP (LEUPRORELIN ACETATE) [Concomitant]
  8. ADIZEM XL (DILTIAZEM HYDROCHLORIDE) [Concomitant]
  9. FOSAMAX [Concomitant]

REACTIONS (3)
  - BLOOD GLUCOSE DECREASED [None]
  - BLOOD GLUCOSE INCREASED [None]
  - INFLUENZA LIKE ILLNESS [None]
